FAERS Safety Report 4883172-4 (Version None)
Quarter: 2006Q1

REPORT INFORMATION
  Report Type: 
  Country: None (occurrence: None)
  Receive Date: 20060117
  Receipt Date: 20060117
  Transmission Date: 20060701
  Serious: Yes (Other)
  Sender: FDA-Public Use
  Company Number: None

PATIENT
  Age: 37 Year
  Sex: Female
  Weight: 63.5036 kg

DRUGS (1)
  1. SIBUTRAMINA 15MG BERANT [Suspect]
     Indication: WEIGHT CONTROL
     Dosage: 15MG ONCE DAILY PO
     Route: 048
     Dates: start: 20050608, end: 20060111

REACTIONS (4)
  - CHEST PAIN [None]
  - ELECTROCARDIOGRAM ABNORMAL [None]
  - MYOCARDIAL INFARCTION [None]
  - PALPITATIONS [None]
